FAERS Safety Report 10714081 (Version 2)
Quarter: 2024Q1

REPORT INFORMATION
  Report Type: Spontaneous
  Country: FR (occurrence: FR)
  Receive Date: 20150115
  Receipt Date: 20240116
  Transmission Date: 20240410
  Serious: Yes (Hospitalization)
  Sender: FDA-Public Use
  Company Number: None

PATIENT
  Age: 73 Year
  Sex: Female

DRUGS (1)
  1. PRADAXA [Suspect]
     Active Substance: DABIGATRAN ETEXILATE MESYLATE
     Indication: Atrial fibrillation
     Route: 048
     Dates: end: 20141217

REACTIONS (4)
  - Asthenia [Recovering/Resolving]
  - Anaemia [Recovering/Resolving]
  - Post procedural haemorrhage [Recovered/Resolved]
  - Haemorrhagic disorder [Recovered/Resolved]

NARRATIVE: CASE EVENT DATE: 20141101
